FAERS Safety Report 8343112 (Version 7)
Quarter: 2013Q4

REPORT INFORMATION
  Report Type: Spontaneous
  Country: US (occurrence: US)
  Receive Date: 20111202
  Receipt Date: 20131108
  Transmission Date: 20140711
  Serious: Yes (Hospitalization, Other)
  Sender: FDA-Public Use
  Company Number: US-009507513-2011SP046655

PATIENT
  Age: 21 Year
  Sex: Female
  Weight: 64.86 kg

DRUGS (4)
  1. NUVARING [Suspect]
     Indication: CONTRACEPTION
     Dates: start: 2006, end: 20091019
  2. NUVARING [Suspect]
     Indication: MENSTRUAL DISORDER
     Dates: end: 200808
  3. NUVARING [Suspect]
     Indication: DYSMENORRHOEA
     Dates: start: 200809
  4. CORTICOSTEROIDS (UNSPECIFIED) [Suspect]
     Indication: COLITIS
     Dates: start: 20091001

REACTIONS (18)
  - Infectious colitis [Recovered/Resolved]
  - Deep vein thrombosis [Unknown]
  - Pulmonary embolism [Unknown]
  - Keratomileusis [Unknown]
  - Emotional distress [Unknown]
  - Migraine [Unknown]
  - Herpes zoster [Unknown]
  - Mononucleosis syndrome [Unknown]
  - Cervical dysplasia [Unknown]
  - Papilloma viral infection [Unknown]
  - Metrorrhagia [Unknown]
  - H1N1 influenza [Unknown]
  - Anxiety [Unknown]
  - Dyspnoea [Recovered/Resolved]
  - Dizziness [Unknown]
  - Antiphospholipid antibodies positive [Unknown]
  - Hypercoagulation [Unknown]
  - Affect lability [Unknown]
